APPROVED DRUG PRODUCT: APIXABAN
Active Ingredient: APIXABAN
Strength: 5MG
Dosage Form/Route: TABLET;ORAL
Application: A210066 | Product #002
Applicant: HETERO LABS LTD UNIT V
Approved: Nov 21, 2023 | RLD: No | RS: No | Type: DISCN